FAERS Safety Report 7487107-X (Version None)
Quarter: 2011Q2

REPORT INFORMATION
  Report Type: 
  Country: None (occurrence: None)
  Receive Date: 20110510
  Receipt Date: 20110426
  Transmission Date: 20111010
  Serious: Yes (Death, Hospitalization)
  Sender: FDA-Public Use
  Company Number: B0717181A

PATIENT
  Age: 40 Year
  Sex: Female

DRUGS (4)
  1. MIRTAZAPINE [Suspect]
     Indication: MAJOR DEPRESSION
  2. LAMOTRIGINE [Suspect]
     Indication: MAJOR DEPRESSION
  3. QUETIAPINE [Suspect]
     Indication: MAJOR DEPRESSION
  4. VENLAFAXINE HCL [Suspect]
     Indication: MAJOR DEPRESSION

REACTIONS (18)
  - CELLULITIS ORBITAL [None]
  - PHARYNGITIS [None]
  - CONVULSION [None]
  - ENTEROCOCCAL INFECTION [None]
  - FEBRILE NEUTROPENIA [None]
  - CHILLS [None]
  - MULTI-ORGAN FAILURE [None]
  - CARDIAC ARREST [None]
  - GENERAL PHYSICAL HEALTH DETERIORATION [None]
  - SEPTIC SHOCK [None]
  - LUNG INFILTRATION [None]
  - ASPERGILLOSIS [None]
  - CANDIDIASIS [None]
  - ORAL CANDIDIASIS [None]
  - PRODUCTIVE COUGH [None]
  - BLOOD CULTURE POSITIVE [None]
  - UNRESPONSIVE TO STIMULI [None]
  - ASPIRATION TRACHEAL ABNORMAL [None]
